FAERS Safety Report 20550952 (Version 2)
Quarter: 2022Q1

REPORT INFORMATION
  Report Type: Spontaneous
  Country: JP (occurrence: JP)
  Receive Date: 20220304
  Receipt Date: 20220309
  Transmission Date: 20220424
  Serious: Yes (Death)
  Sender: FDA-Public Use
  Company Number: JP-CELGENE-JPN-20220300749

PATIENT
  Sex: Female

DRUGS (1)
  1. REVLIMID [Suspect]
     Active Substance: LENALIDOMIDE
     Indication: Plasma cell myeloma
     Dosage: UNKNOWN
     Route: 048
     Dates: start: 201502, end: 202110

REACTIONS (1)
  - Death [Fatal]
